FAERS Safety Report 7261831-6 (Version None)
Quarter: 2011Q1

REPORT INFORMATION
  Report Type: 
  Country: None (occurrence: None)
  Receive Date: 20110124
  Receipt Date: 20110124
  Transmission Date: 20110831
  Serious: Yes (Other)
  Sender: FDA-Public Use
  Company Number: None

PATIENT
  Age: 48 Year
  Sex: Female
  Weight: 74.8435 kg

DRUGS (2)
  1. ANTISEPTIC ALCOHOL SWAB 70% ISOPROPYL ALCOHOL TRIAD GROUP, INC. [Suspect]
     Indication: THERAPEUTIC SKIN CARE TOPICAL
     Dates: start: 20110116, end: 20110116
  2. ANTISEPTIC ALCOHOL SWAB 70% ISOPROPYL ALCOHOL TRIAD GROUP, INC. [Suspect]

REACTIONS (3)
  - ABDOMINAL PAIN [None]
  - DIARRHOEA [None]
  - ACCIDENTAL EXPOSURE [None]
